FAERS Safety Report 8870880 (Version 1)
Quarter: 2012Q4

REPORT INFORMATION
  Report Type: 
  Country: US (occurrence: US)
  Receive Date: 20121026
  Receipt Date: 20121026
  Transmission Date: 20130627
  Serious: No
  Sender: FDA-Public Use
  Company Number: US-AMGEN-USASP2012043176

PATIENT
  Age: 31 Year
  Sex: Female
  Weight: 117.91 kg

DRUGS (6)
  1. ENBREL [Suspect]
     Indication: PRODUCT USED FOR UNKNOWN INDICATION
     Dosage: 50 mg, qwk
     Route: 058
  2. CYMBALTA [Concomitant]
     Dosage: 20 mg, UNK
  3. SOMA [Concomitant]
     Dosage: 250 mg, UNK
  4. GABAPENTIN [Concomitant]
     Dosage: 100 mg, UNK
  5. ABILIFY [Concomitant]
     Dosage: 10 mg, UNK
  6. NORCO [Concomitant]
     Dosage: 7.5-325, UNK

REACTIONS (1)
  - Lymphadenopathy [Unknown]
